FAERS Safety Report 6802590-8 (Version None)
Quarter: 2010Q2

REPORT INFORMATION
  Report Type: 
  Country: None (occurrence: None)
  Receive Date: 20100628
  Receipt Date: 20100623
  Transmission Date: 20101027
  Serious: Yes (Other)
  Sender: FDA-Public Use
  Company Number: US-BAYER-200937811NA

PATIENT
  Age: 44 Year
  Sex: Female

DRUGS (2)
  1. BETASERON [Suspect]
     Indication: MULTIPLE SCLEROSIS
     Dosage: TOTAL DAILY DOSE: 8 MIU
     Route: 058
     Dates: start: 20090912, end: 20091125
  2. LUBRICANT DROPS [Concomitant]
     Indication: EYE DISORDER
     Route: 065

REACTIONS (5)
  - ASTHENIA [None]
  - CATARACT [None]
  - DRY EYE [None]
  - RETINAL DISORDER [None]
  - VISION BLURRED [None]
